FAERS Safety Report 9473200 (Version 1)
Quarter: 2013Q3

REPORT INFORMATION
  Report Type: Spontaneous
  Country: US (occurrence: US)
  Receive Date: 20130823
  Receipt Date: 20130823
  Transmission Date: 20140515
  Serious: No
  Sender: FDA-Public Use
  Company Number: US-BRISTOL-MYERS SQUIBB COMPANY-18762955

PATIENT
  Age: 57 Year
  Sex: Female
  Weight: 87.07 kg

DRUGS (5)
  1. SPRYCEL [Suspect]
     Indication: CHRONIC MYELOID LEUKAEMIA
     Route: 048
     Dates: start: 2009
  2. ALEVE [Concomitant]
  3. ALLEGRA [Concomitant]
  4. MIRAPEX [Concomitant]
  5. NAPROXEN [Concomitant]

REACTIONS (2)
  - Dyspnoea [Unknown]
  - Fatigue [Unknown]
